FAERS Safety Report 15677014 (Version 2)
Quarter: 2018Q4

REPORT INFORMATION
  Report Type: Spontaneous
  Country: US (occurrence: US)
  Receive Date: 20181130
  Receipt Date: 20181211
  Transmission Date: 20190205
  Serious: Yes (Hospitalization, Other)
  Sender: FDA-Public Use
  Company Number: US-TORRENT-00007239

PATIENT
  Age: 65 Year
  Sex: Female
  Weight: 95 kg

DRUGS (2)
  1. ASPIRIN. [Concomitant]
     Active Substance: ASPIRIN
     Indication: PRODUCT USED FOR UNKNOWN INDICATION
     Dosage: UNKNOWN
  2. LOSARTAN AND HYDROCHLOROTHIAZIDE [Suspect]
     Active Substance: HYDROCHLOROTHIAZIDE\LOSARTAN POTASSIUM
     Indication: BLOOD PRESSURE MEASUREMENT
     Dosage: 100/25 MG

REACTIONS (14)
  - Abnormal weight gain [Unknown]
  - Heart rate increased [Unknown]
  - Dry skin [Unknown]
  - Back pain [Unknown]
  - Urinary tract infection [Unknown]
  - Drug ineffective [Unknown]
  - Abdominal pain upper [Unknown]
  - Muscle spasms [Unknown]
  - Pericardial drainage [Unknown]
  - Neoplasm [Unknown]
  - Oropharyngeal surgery [Unknown]
  - Thyroid disorder [Unknown]
  - Anal incontinence [Unknown]
  - Diarrhoea [Unknown]
